FAERS Safety Report 4974575-8 (Version None)
Quarter: 2006Q2

REPORT INFORMATION
  Report Type: 
  Country: None (occurrence: None)
  Receive Date: 20060410
  Receipt Date: 20060330
  Transmission Date: 20061013
  Serious: Yes (Life-Threatening)
  Sender: FDA-Public Use
  Company Number: 028-20785-06030218

PATIENT
  Age: 81 Year
  Sex: Male

DRUGS (3)
  1. THALOMID [Suspect]
     Indication: MULTIPLE MYELOMA
     Dosage: 100 MG, DAILY, ORAL
     Route: 048
     Dates: start: 20001101, end: 20060201
  2. LANOXIN [Concomitant]
  3. COUMADIN [Concomitant]

REACTIONS (6)
  - ATRIAL FIBRILLATION [None]
  - BRADYARRHYTHMIA [None]
  - CARDIOACTIVE DRUG LEVEL DECREASED [None]
  - NODAL RHYTHM [None]
  - PULMONARY OEDEMA [None]
  - VENTRICULAR DYSFUNCTION [None]
